FAERS Safety Report 6851977-6 (Version None)
Quarter: 2010Q3

REPORT INFORMATION
  Report Type: 
  Country: None (occurrence: None)
  Receive Date: 20100717
  Receipt Date: 20080414
  Transmission Date: 20110219
  Serious: No
  Sender: FDA-Public Use
  Company Number: US-PFIZER INC-2007094391

PATIENT
  Sex: Female
  Weight: 44.5 kg

DRUGS (4)
  1. CHANTIX [Suspect]
     Indication: SMOKING CESSATION THERAPY
     Dates: start: 20071001
  2. WELLBUTRIN [Concomitant]
  3. DRUG USED IN DIABETES [Concomitant]
     Indication: DIABETES MELLITUS
  4. COMBIVENT [Concomitant]

REACTIONS (2)
  - FATIGUE [None]
  - NAUSEA [None]
